FAERS Safety Report 11323143 (Version 1)
Quarter: 2015Q3

REPORT INFORMATION
  Report Type: Report from Study
  Country: BR (occurrence: BR)
  Receive Date: 20150730
  Receipt Date: 20150730
  Transmission Date: 20151125
  Serious: Yes (Death, Other)
  Sender: FDA-Public Use
  Company Number: PHHY2015BR090280

PATIENT
  Age: 49 Year
  Sex: Female
  Weight: 60 kg

DRUGS (1)
  1. EXELON PATCH [Suspect]
     Active Substance: RIVASTIGMINE
     Indication: FRONTOTEMPORAL DEMENTIA
     Dosage: 1 DF, QD
     Route: 062

REACTIONS (4)
  - Cardiac arrest [Unknown]
  - Dysphagia [Unknown]
  - Death [Fatal]
  - Choking [Unknown]

NARRATIVE: CASE EVENT DATE: 201404
